FAERS Safety Report 6477901-6 (Version None)
Quarter: 2009Q4

REPORT INFORMATION
  Report Type: 
  Country: None (occurrence: None)
  Receive Date: 20091207
  Receipt Date: 20091109
  Transmission Date: 20100525
  Serious: No
  Sender: FDA-Public Use
  Company Number: US-BAYER-200916661BCC

PATIENT
  Age: 81 Year
  Sex: Male
  Weight: 102 kg

DRUGS (2)
  1. ALEVE [Suspect]
     Indication: ARTHRITIS
     Dosage: TOTAL DAILY DOSE: 440 MG  UNIT DOSE: 220 MG
     Route: 048
     Dates: start: 20091009
  2. METFORMIN HCL [Concomitant]
     Route: 065

REACTIONS (1)
  - CONSTIPATION [None]
